FAERS Safety Report 8240546-1 (Version None)
Quarter: 2012Q1

REPORT INFORMATION
  Report Type: 
  Country: None (occurrence: None)
  Receive Date: 20120328
  Receipt Date: 20120316
  Transmission Date: 20120608
  Serious: Yes (Hospitalization)
  Sender: FDA-Public Use
  Company Number: FR-ROCHE-1050260

PATIENT
  Sex: Male
  Weight: 93 kg

DRUGS (7)
  1. TELAPREVIR [Suspect]
     Indication: HEPATITIS C
     Route: 048
     Dates: start: 20111205, end: 20120227
  2. SEROPRAM (FRANCE) [Concomitant]
  3. CLONAZEPAM [Concomitant]
  4. ZYPREXA [Concomitant]
  5. COPEGUS [Suspect]
     Indication: HEPATITIS C
     Route: 048
     Dates: start: 20111205
  6. PEGASYS [Suspect]
     Indication: HEPATITIS C
     Route: 058
     Dates: start: 20111205
  7. SUBUTEX [Concomitant]

REACTIONS (1)
  - GENERALISED OEDEMA [None]
